FAERS Safety Report 8256732-0 (Version None)
Quarter: 2012Q2

REPORT INFORMATION
  Report Type: 
  Country: None (occurrence: None)
  Receive Date: 20120403
  Receipt Date: 20120326
  Transmission Date: 20120825
  Serious: Yes (Hospitalization)
  Sender: FDA-Public Use
  Company Number: US-JNJFOC-20120312668

PATIENT
  Sex: Female
  Weight: 49.9 kg

DRUGS (3)
  1. PANCREAZE [Suspect]
     Indication: PANCREATICODUODENECTOMY
     Route: 048
  2. H1N1 VACCINE [Suspect]
     Indication: PRODUCT USED FOR UNKNOWN INDICATION
     Route: 065
  3. PANCREASE [Suspect]
     Indication: PANCREATICODUODENECTOMY
     Route: 048
     Dates: start: 19930101

REACTIONS (6)
  - HERPES ZOSTER [None]
  - ILL-DEFINED DISORDER [None]
  - DIABETES MELLITUS [None]
  - IMMUNE SYSTEM DISORDER [None]
  - POST HERPETIC NEURALGIA [None]
  - ABNORMAL LOSS OF WEIGHT [None]
